FAERS Safety Report 12684012 (Version 1)
Quarter: 2016Q3

REPORT INFORMATION
  Report Type: Spontaneous
  Country: US (occurrence: US)
  Receive Date: 20160825
  Receipt Date: 20160825
  Transmission Date: 20161109
  Serious: No
  Sender: FDA-Public Use
  Company Number: US-ALLERGAN-1660422US

PATIENT
  Sex: Male

DRUGS (1)
  1. ANDRODERM [Suspect]
     Active Substance: TESTOSTERONE
     Indication: PRODUCT USED FOR UNKNOWN INDICATION
     Dosage: 2 MG, QD
     Route: 062
     Dates: start: 20160518

REACTIONS (8)
  - Urticaria [Unknown]
  - Rash [Recovering/Resolving]
  - Chest discomfort [Unknown]
  - Hormone level abnormal [Unknown]
  - Erythema [Recovering/Resolving]
  - Mood swings [Unknown]
  - Application site pruritus [Recovering/Resolving]
  - Blister [Recovering/Resolving]

NARRATIVE: CASE EVENT DATE: 201605
